FAERS Safety Report 7069738-4 (Version None)
Quarter: 2010Q4

REPORT INFORMATION
  Report Type: 
  Country: None (occurrence: None)
  Receive Date: 20101028
  Receipt Date: 20100611
  Transmission Date: 20110411
  Serious: No
  Sender: FDA-Public Use
  Company Number: US-WYE-H15184210

PATIENT
  Age: 51 Year
  Sex: Male
  Weight: 81.72 kg

DRUGS (1)
  1. IBUPROFEN [Suspect]
     Indication: BACK PAIN
     Dosage: 1-2 CAPSULES AS NEEDED
     Route: 048
     Dates: start: 20100501, end: 20100501

REACTIONS (1)
  - DRUG EFFECT DECREASED [None]
